FAERS Safety Report 23451641 (Version 1)
Quarter: 2024Q1

REPORT INFORMATION
  Report Type: Spontaneous
  Country: FR (occurrence: FR)
  Receive Date: 20240129
  Receipt Date: 20240129
  Transmission Date: 20240410
  Serious: Yes (Life-Threatening, Hospitalization, Other)
  Sender: FDA-Public Use
  Company Number: None

PATIENT

DRUGS (2)
  1. DEFITELIO [Suspect]
     Active Substance: DEFIBROTIDE SODIUM
     Indication: Venoocclusive disease
     Dosage: UNK
     Route: 042
     Dates: start: 20231222, end: 20240103
  2. FUROSEMIDE [Suspect]
     Active Substance: FUROSEMIDE
     Indication: Venoocclusive disease
     Dosage: UNK
     Route: 042
     Dates: start: 20231222, end: 20231226

REACTIONS (1)
  - Cardiac tamponade [Not Recovered/Not Resolved]

NARRATIVE: CASE EVENT DATE: 20231228
